FAERS Safety Report 10403546 (Version 1)
Quarter: 2014Q3

REPORT INFORMATION
  Report Type: Spontaneous
  Country: US (occurrence: US)
  Receive Date: 20140822
  Receipt Date: 20140822
  Transmission Date: 20150326
  Serious: Yes (Hospitalization)
  Sender: FDA-Public Use
  Company Number: US-INCYTE CORPORATION-2014IN002352

PATIENT
  Age: 60 Year
  Sex: Male

DRUGS (7)
  1. LYRICA [Concomitant]
     Active Substance: PREGABALIN
  2. ALPHA LIPOIC ACID [Concomitant]
     Active Substance: .ALPHA.-LIPOIC ACID
  3. JAKAFI [Suspect]
     Active Substance: RUXOLITINIB
     Dosage: 10 MG, QD
     Route: 048
     Dates: start: 201307
  4. AMITRIPTYLINE [Concomitant]
     Active Substance: AMITRIPTYLINE
  5. METFORMIN [Concomitant]
     Active Substance: METFORMIN HYDROCHLORIDE
  6. CYMBALTA [Concomitant]
     Active Substance: DULOXETINE HYDROCHLORIDE
  7. HYDROCODONE W/APAP                 /01554201/ [Concomitant]

REACTIONS (2)
  - Haematemesis [Unknown]
  - Haematochezia [Unknown]

NARRATIVE: CASE EVENT DATE: 20140804
